FAERS Safety Report 6029521-5 (Version None)
Quarter: 2009Q1

REPORT INFORMATION
  Report Type: 
  Country: None (occurrence: None)
  Receive Date: 20090107
  Receipt Date: 20081229
  Transmission Date: 20090719
  Serious: Yes (Hospitalization)
  Sender: FDA-Public Use
  Company Number: US-RB-007846-09

PATIENT
  Sex: Female

DRUGS (5)
  1. MUCINEX DM [Suspect]
     Route: 048
     Dates: start: 20081212
  2. SYNTHROID [Concomitant]
  3. SIMVASTATIN [Concomitant]
  4. LOTRIL [Concomitant]
     Indication: HYPERTENSION
  5. ACTONEL [Concomitant]

REACTIONS (6)
  - DIZZINESS [None]
  - FEELING HOT [None]
  - HEART RATE INCREASED [None]
  - HYPERTENSION [None]
  - NERVOUSNESS [None]
  - PALPITATIONS [None]
